FAERS Safety Report 15015013 (Version 1)
Quarter: 2018Q2

REPORT INFORMATION
  Report Type: Spontaneous
  Country: US (occurrence: US)
  Receive Date: 20180615
  Receipt Date: 20180615
  Transmission Date: 20180711
  Serious: Yes (Death, Hospitalization, Other)
  Sender: FDA-Public Use
  Company Number: US-ALKEM LABORATORIES LIMITED-US-ALKEM-2018-04192

PATIENT
  Sex: Male

DRUGS (1)
  1. OLANZAPINE. [Suspect]
     Active Substance: OLANZAPINE
     Indication: BIPOLAR DISORDER
     Dosage: 10 MG, UNK
     Route: 030

REACTIONS (4)
  - Renal failure [Unknown]
  - Candida sepsis [Fatal]
  - Diabetes insipidus [Unknown]
  - Status epilepticus [Unknown]
